FAERS Safety Report 7777021-4 (Version None)
Quarter: 2011Q3

REPORT INFORMATION
  Report Type: 
  Country: None (occurrence: None)
  Receive Date: 20110926
  Receipt Date: 20110926
  Transmission Date: 20111222
  Serious: Yes (Life-Threatening, Hospitalization)
  Sender: FDA-Public Use
  Company Number: None

PATIENT
  Age: 83 Year
  Sex: Male
  Weight: 67.1 kg

DRUGS (2)
  1. MULTAQ [Concomitant]
     Route: 048
  2. PRADAXA [Suspect]
     Indication: ATRIAL FIBRILLATION
     Dosage: 150 MG
     Route: 048
     Dates: start: 20110119, end: 20110911

REACTIONS (3)
  - CEREBRAL HAEMORRHAGE [None]
  - BRAIN MIDLINE SHIFT [None]
  - SUBDURAL HAEMORRHAGE [None]
